FAERS Safety Report 9632879 (Version 11)
Quarter: 2014Q3

REPORT INFORMATION
  Report Type: Report from Study
  Country: RU (occurrence: RU)
  Receive Date: 20131018
  Receipt Date: 20140930
  Transmission Date: 20150326
  Serious: Yes (Life-Threatening)
  Sender: FDA-Public Use
  Company Number: RU-009507513-1309RUS008790

PATIENT
  Age: 33 Year
  Sex: Female
  Weight: 60.5 kg

DRUGS (24)
  1. PEGINTERFERON ALFA-2A [Suspect]
     Active Substance: PEGINTERFERON ALFA-2A
     Dosage: 180 MICROGRAM, UNK
     Dates: start: 20130909, end: 20130909
  2. PEGINTERFERON ALFA-2A [Suspect]
     Active Substance: PEGINTERFERON ALFA-2A
     Dosage: 180 MICROGRAM, UNK
     Dates: start: 20130902, end: 20130902
  3. PEGINTERFERON ALFA-2A [Suspect]
     Active Substance: PEGINTERFERON ALFA-2A
     Dosage: 90 MICROGRAM, UNK
     Route: 058
     Dates: start: 20130930, end: 20130930
  4. RIBAVIRIN. [Suspect]
     Active Substance: RIBAVIRIN
     Dosage: 3 CAPSULE, QPM
     Route: 048
     Dates: start: 20130826, end: 20130908
  5. RIBAVIRIN. [Suspect]
     Active Substance: RIBAVIRIN
     Dosage: 3 CAPSULES, QAM
     Route: 048
     Dates: start: 20131007, end: 20131010
  6. RIBAVIRIN. [Suspect]
     Active Substance: RIBAVIRIN
     Dosage: UNK
  7. BOCEPREVIR [Suspect]
     Active Substance: BOCEPREVIR
     Dosage: 4 DF, AFTERNOON
     Route: 048
     Dates: start: 20131007, end: 20131009
  8. PEGINTERFERON ALFA-2A [Suspect]
     Active Substance: PEGINTERFERON ALFA-2A
     Dosage: 90 MICROGRAM, (LAST DOSE)
     Route: 058
     Dates: start: 20131014, end: 20131014
  9. RIBAVIRIN. [Suspect]
     Active Substance: RIBAVIRIN
     Dosage: 2 CAPSULE, QAM
     Route: 048
     Dates: start: 20130909, end: 20130923
  10. RIBAVIRIN. [Suspect]
     Active Substance: RIBAVIRIN
     Dosage: 3 CAPSULES, QPM
     Route: 048
     Dates: start: 20131007, end: 20131009
  11. RIBAVIRIN. [Suspect]
     Active Substance: RIBAVIRIN
     Dosage: 3 CAPSULES, QAM
     Route: 048
     Dates: start: 20131014, end: 20131017
  12. BOCEPREVIR [Suspect]
     Active Substance: BOCEPREVIR
     Dosage: 4 DF, QAM
     Route: 048
     Dates: start: 20131008, end: 20131010
  13. BOCEPREVIR [Suspect]
     Active Substance: BOCEPREVIR
     Dosage: 4 DF, QPM
     Route: 048
     Dates: start: 20131007, end: 20131009
  14. PEGINTERFERON ALFA-2A [Suspect]
     Active Substance: PEGINTERFERON ALFA-2A
     Indication: CHRONIC HEPATITIS C
     Dosage: 180 MICROGRAM, UNK
     Route: 058
     Dates: start: 20130826, end: 20130826
  15. RIBAVIRIN. [Suspect]
     Active Substance: RIBAVIRIN
     Indication: CHRONIC HEPATITIS C
     Dosage: 2 CAPSULES, UNK
     Route: 048
     Dates: start: 20130826, end: 20130826
  16. RIBAVIRIN. [Suspect]
     Active Substance: RIBAVIRIN
     Dosage: 2 CAPSULE, QAM
     Route: 048
     Dates: start: 20130827, end: 20130908
  17. RIBAVIRIN. [Suspect]
     Active Substance: RIBAVIRIN
     Dosage: 3 CAPSULES, QPM
     Route: 048
     Dates: start: 20130909, end: 20130923
  18. RIBAVIRIN. [Suspect]
     Active Substance: RIBAVIRIN
     Dosage: 3 CAPSULES, QPM
     Route: 048
     Dates: start: 20130924, end: 20131006
  19. PEGINTERFERON ALFA-2A [Suspect]
     Active Substance: PEGINTERFERON ALFA-2A
     Dosage: 90 MICROGRAM, UNK
     Route: 058
     Dates: start: 20131007, end: 20131007
  20. RIBAVIRIN. [Suspect]
     Active Substance: RIBAVIRIN
     Dosage: 2 CAPSULES, QAM
     Route: 048
     Dates: start: 20130924, end: 20131006
  21. RIBAVIRIN. [Suspect]
     Active Substance: RIBAVIRIN
     Dosage: 2 CAPSULES, QAM
     Route: 048
     Dates: start: 20131014, end: 20131017
  22. BOCEPREVIR [Suspect]
     Active Substance: BOCEPREVIR
     Indication: CHRONIC HEPATITIS C
     Dosage: 4 CAPSULES, UNK
     Route: 048
     Dates: start: 20131007, end: 20131007
  23. BOCEPREVIR [Suspect]
     Active Substance: BOCEPREVIR
     Dosage: 4 CAPSULES, UNK (LAST DOSE)
     Route: 048
     Dates: start: 20131010, end: 20131010
  24. RIBAVIRIN. [Suspect]
     Active Substance: RIBAVIRIN
     Dosage: 2 CAPSULES, UNK (LAST DOSE)
     Route: 048
     Dates: start: 20131018, end: 20131018

REACTIONS (2)
  - Neutrophil count decreased [Recovered/Resolved]
  - Neutropenia [Recovered/Resolved]

NARRATIVE: CASE EVENT DATE: 20130909
